FAERS Safety Report 21211565 (Version 1)
Quarter: 2022Q3

REPORT INFORMATION
  Report Type: Spontaneous
  Country: US (occurrence: None)
  Receive Date: 20220812
  Receipt Date: 20220812
  Transmission Date: 20221026
  Serious: No
  Sender: FDA-Public Use
  Company Number: None

PATIENT
  Age: 63 Year
  Sex: Male
  Weight: 104 kg

DRUGS (1)
  1. NIRMATRELVIR\RITONAVIR [Suspect]
     Active Substance: NIRMATRELVIR\RITONAVIR
     Indication: COVID-19
     Dosage: OTHER QUANTITY : 300/100 MG;?FREQUENCY : TWICE A DAY;?
     Route: 048
     Dates: start: 20220726, end: 20220731

REACTIONS (9)
  - Oral herpes [None]
  - Vision blurred [None]
  - Respiratory tract congestion [None]
  - Dysphonia [None]
  - Oral herpes [None]
  - COVID-19 [None]
  - Hyperhidrosis [None]
  - Sinus congestion [None]
  - Cough [None]

NARRATIVE: CASE EVENT DATE: 20220803
